FAERS Safety Report 12647439 (Version 1)
Quarter: 2016Q3

REPORT INFORMATION
  Report Type: Spontaneous
  Country: US (occurrence: None)
  Receive Date: 20160811
  Receipt Date: 20160811
  Transmission Date: 20161109
  Serious: Yes (Disabling)
  Sender: FDA-Public Use
  Company Number: None

PATIENT
  Age: 69 Year
  Sex: Female
  Weight: 43.55 kg

DRUGS (8)
  1. MAGNESIUM SUPPLEMENT [Concomitant]
  2. MYLANTA [Concomitant]
     Active Substance: ALUMINUM HYDROXIDE\DIMETHICONE\MAGNESIUM HYDROXIDE
  3. ZYRTEC-D ALLERGY AND CONGESTION [Concomitant]
     Active Substance: CETIRIZINE HYDROCHLORIDE\PSEUDOEPHEDRINE HYDROCHLORIDE
  4. GLUTATHIONE [Concomitant]
     Active Substance: GLUTATHIONE
  5. LEVOFLOXCIN AUROBINDO [Suspect]
     Active Substance: LEVOFLOXACIN
     Indication: RESPIRATORY TRACT CONGESTION
     Dosage: 5  IV AND MOUNTH??STOPP AFTER 5 MONTHS
     Route: 042
     Dates: start: 20150612, end: 20150622
  6. CALCIUM W/VITAMIN D CHEWS [Concomitant]
  7. PROBIOTICS [Concomitant]
     Active Substance: PROBIOTICS NOS
  8. COENZYME Q10 [Concomitant]
     Active Substance: UBIDECARENONE

REACTIONS (14)
  - Anxiety [None]
  - Headache [None]
  - Arthralgia [None]
  - Vision blurred [None]
  - Fatigue [None]
  - Muscle atrophy [None]
  - Pain [None]
  - Weight decreased [None]
  - Neuralgia [None]
  - Depression [None]
  - Dyspnoea [None]
  - Muscle spasms [None]
  - Pyrexia [None]
  - Swelling [None]

NARRATIVE: CASE EVENT DATE: 20150706
